FAERS Safety Report 20783875 (Version 1)
Quarter: 2022Q2

REPORT INFORMATION
  Report Type: Other
  Country: CA (occurrence: CA)
  Receive Date: 20220504
  Receipt Date: 20220504
  Transmission Date: 20220720
  Serious: Yes (Hospitalization, Other)
  Sender: FDA-Public Use
  Company Number: CA-ROCHE-3086507

PATIENT
  Age: 42 Year
  Sex: Female
  Weight: 126 kg

DRUGS (30)
  1. ACTEMRA [Suspect]
     Active Substance: TOCILIZUMAB
     Indication: Rheumatoid arthritis
     Route: 042
     Dates: start: 20101208
  2. ACTEMRA [Suspect]
     Active Substance: TOCILIZUMAB
     Route: 042
     Dates: start: 20110207, end: 20110207
  3. ACTEMRA [Suspect]
     Active Substance: TOCILIZUMAB
     Route: 042
     Dates: start: 20110324
  4. ACTEMRA [Suspect]
     Active Substance: TOCILIZUMAB
     Route: 042
     Dates: start: 20120410, end: 20130904
  5. ACTEMRA [Suspect]
     Active Substance: TOCILIZUMAB
     Route: 042
     Dates: start: 20131022, end: 20140430
  6. ACTEMRA [Suspect]
     Active Substance: TOCILIZUMAB
     Route: 042
     Dates: start: 20140529, end: 20150202
  7. ACTEMRA [Suspect]
     Active Substance: TOCILIZUMAB
     Route: 042
     Dates: start: 20150317, end: 20160301
  8. ACTEMRA [Suspect]
     Active Substance: TOCILIZUMAB
     Route: 042
     Dates: start: 20160421, end: 20160421
  9. ACTEMRA [Suspect]
     Active Substance: TOCILIZUMAB
     Route: 042
     Dates: start: 20160517, end: 20190403
  10. ACTEMRA [Suspect]
     Active Substance: TOCILIZUMAB
     Route: 042
     Dates: start: 20170706
  11. ACTEMRA [Suspect]
     Active Substance: TOCILIZUMAB
     Route: 042
     Dates: start: 20171031
  12. ACTEMRA [Suspect]
     Active Substance: TOCILIZUMAB
     Route: 042
     Dates: start: 20180131, end: 20190403
  13. ACTEMRA [Suspect]
     Active Substance: TOCILIZUMAB
     Route: 042
     Dates: start: 20190709
  14. ACTEMRA [Suspect]
     Active Substance: TOCILIZUMAB
     Route: 042
     Dates: start: 20201001
  15. ACTEMRA [Suspect]
     Active Substance: TOCILIZUMAB
     Indication: Rheumatoid arthritis
     Route: 058
     Dates: start: 20190501, end: 201906
  16. ABATACEPT [Suspect]
     Active Substance: ABATACEPT
     Indication: Product used for unknown indication
     Route: 042
     Dates: start: 201005, end: 201011
  17. DICLOFENAC [Suspect]
     Active Substance: DICLOFENAC
     Indication: Product used for unknown indication
     Route: 065
     Dates: end: 2013
  18. AMOXICILLIN [Suspect]
     Active Substance: AMOXICILLIN
     Indication: Sinusitis
     Dosage: STOPPED ON DAY 8 OF 10 OF TREATMENT
     Route: 065
     Dates: start: 201411
  19. AMOXICILLIN [Suspect]
     Active Substance: AMOXICILLIN
     Indication: Tympanic membrane perforation
  20. ARAVA [Concomitant]
     Active Substance: LEFLUNOMIDE
  21. PANTOPRAZOLE SODIUM [Concomitant]
     Active Substance: PANTOPRAZOLE SODIUM
     Indication: Antacid therapy
     Route: 048
     Dates: start: 2005
  22. CARDIZEM [Concomitant]
     Active Substance: DILTIAZEM HYDROCHLORIDE
     Indication: Hypertension
     Route: 048
  23. CARDIZEM [Concomitant]
     Active Substance: DILTIAZEM HYDROCHLORIDE
     Dosage: DOSAGE INCREASED
     Route: 048
  24. CARDIZEM [Concomitant]
     Active Substance: DILTIAZEM HYDROCHLORIDE
     Route: 048
     Dates: start: 2005
  25. AVAPRO [Concomitant]
     Active Substance: IRBESARTAN
     Indication: Hypertension
     Route: 048
     Dates: start: 2009
  26. CIPRALEX [Concomitant]
     Active Substance: ESCITALOPRAM OXALATE
  27. OMEGA 3 [Concomitant]
     Active Substance: CAPSAICIN
     Dosage: DRUG REPORTED: OMEGA 3
  28. ATORVASTATIN [Concomitant]
     Active Substance: ATORVASTATIN
  29. CITALOPRAM [Concomitant]
     Active Substance: CITALOPRAM HYDROBROMIDE
  30. CLONAZEPAM [Concomitant]
     Active Substance: CLONAZEPAM

REACTIONS (76)
  - Arthrodesis [Recovering/Resolving]
  - Pneumonia [Recovered/Resolved]
  - Nephrolithiasis [Not Recovered/Not Resolved]
  - Gastric disorder [Unknown]
  - Parotid gland enlargement [Recovered/Resolved]
  - Arthralgia [Unknown]
  - Psoriasis [Recovered/Resolved]
  - Incision site haemorrhage [Recovered/Resolved]
  - Bronchial hyperreactivity [Not Recovered/Not Resolved]
  - Skin swelling [Not Recovered/Not Resolved]
  - Road traffic accident [Unknown]
  - Fibrous histiocytoma [Recovered/Resolved]
  - Hepatic enzyme increased [Recovered/Resolved]
  - Weight decreased [Not Recovered/Not Resolved]
  - Weight abnormal [Unknown]
  - Hepatic steatosis [Unknown]
  - Thermal burn [Recovered/Resolved]
  - Cellulitis [Recovered/Resolved]
  - Blood pressure increased [Not Recovered/Not Resolved]
  - Urinary tract infection [Not Recovered/Not Resolved]
  - Nasal congestion [Unknown]
  - Decubitus ulcer [Recovered/Resolved]
  - Weight increased [Not Recovered/Not Resolved]
  - Nasopharyngitis [Not Recovered/Not Resolved]
  - Blood pressure inadequately controlled [Unknown]
  - Spinal pain [Not Recovered/Not Resolved]
  - Dysphonia [Not Recovered/Not Resolved]
  - Neck pain [Not Recovered/Not Resolved]
  - Sinusitis [Recovering/Resolving]
  - Pyrexia [Not Recovered/Not Resolved]
  - Headache [Unknown]
  - Tinnitus [Unknown]
  - Ligament sprain [Unknown]
  - Myalgia [Unknown]
  - Spinal pain [Unknown]
  - Cystitis [Recovered/Resolved]
  - Poor venous access [Unknown]
  - Infusion related reaction [Unknown]
  - Tympanic membrane perforation [Unknown]
  - Blood urine present [Unknown]
  - Urticaria [Unknown]
  - Conjunctivitis [Recovering/Resolving]
  - Paranasal sinus discomfort [Not Recovered/Not Resolved]
  - Somnolence [Not Recovered/Not Resolved]
  - Sinusitis [Not Recovered/Not Resolved]
  - Blood pressure systolic increased [Unknown]
  - Ear infection [Recovered/Resolved]
  - Arthropod bite [Not Recovered/Not Resolved]
  - Infected bite [Unknown]
  - Heart rate decreased [Unknown]
  - Hypertension [Unknown]
  - Nasopharyngitis [Recovering/Resolving]
  - Nasal congestion [Not Recovered/Not Resolved]
  - Rhinorrhoea [Not Recovered/Not Resolved]
  - Psoriasis [Recovered/Resolved]
  - Nephrolithiasis [Not Recovered/Not Resolved]
  - Dizziness [Unknown]
  - Urinary tract obstruction [Not Recovered/Not Resolved]
  - Ureteric obstruction [Not Recovered/Not Resolved]
  - Cystitis [Unknown]
  - Arthropod bite [Recovering/Resolving]
  - Skin infection [Recovering/Resolving]
  - Hydronephrosis [Recovered/Resolved]
  - Musculoskeletal chest pain [Unknown]
  - Bone swelling [Unknown]
  - Sebaceous gland infection [Unknown]
  - Illness [Unknown]
  - Investigation abnormal [Unknown]
  - Dehydration [Unknown]
  - Poor venous access [Unknown]
  - Blood pressure increased [Unknown]
  - Oxygen saturation decreased [Unknown]
  - Respiratory rate increased [Unknown]
  - Therapy non-responder [Unknown]
  - Skin reaction [Unknown]
  - Heart rate decreased [Unknown]

NARRATIVE: CASE EVENT DATE: 20101209
